FAERS Safety Report 25525909 (Version 1)
Quarter: 2025Q3

REPORT INFORMATION
  Report Type: Report from Study
  Country: AU (occurrence: AU)
  Receive Date: 20250707
  Receipt Date: 20250707
  Transmission Date: 20251020
  Serious: Yes (Hospitalization, Other)
  Sender: TAKEDA
  Company Number: AU-TAKEDA-2025TUS059711

PATIENT
  Age: 61 Year
  Sex: Female

DRUGS (3)
  1. VEDOLIZUMAB [Suspect]
     Active Substance: VEDOLIZUMAB
     Indication: Crohn^s disease
  2. PENTASA [Concomitant]
     Active Substance: MESALAMINE
  3. PANTOPRAZOLE [Concomitant]
     Active Substance: PANTOPRAZOLE

REACTIONS (5)
  - Diverticulum intestinal haemorrhagic [Recovered/Resolved]
  - Abdominal pain lower [Unknown]
  - Anxiety [Recovered/Resolved]
  - Stress [Recovered/Resolved]
  - Abdominal distension [Unknown]

NARRATIVE: CASE EVENT DATE: 20250606
